FAERS Safety Report 21140852 (Version 1)
Quarter: 2022Q3

REPORT INFORMATION
  Report Type: Spontaneous
  Country: ES (occurrence: ES)
  Receive Date: 20220728
  Receipt Date: 20220728
  Transmission Date: 20221027
  Serious: Yes (Other)
  Sender: FDA-Public Use
  Company Number: None

PATIENT
  Age: 76 Year
  Sex: Female

DRUGS (5)
  1. PRALUENT [Suspect]
     Active Substance: ALIROCUMAB
     Indication: Dyslipidaemia
     Dosage: 150 MG
     Route: 058
     Dates: start: 20211102, end: 20220204
  2. ASPIRIN [Concomitant]
     Active Substance: ASPIRIN
     Indication: Ischaemic cardiomyopathy
     Dosage: 100 MG, QD
     Route: 048
     Dates: start: 201810
  3. ROSUVASTATIN [Concomitant]
     Active Substance: ROSUVASTATIN
     Indication: Dyslipidaemia
     Dosage: 20 MG, QD
     Route: 048
     Dates: start: 20210714
  4. SOTALOL HYDROCHLORIDE [Concomitant]
     Active Substance: SOTALOL HYDROCHLORIDE
     Indication: Ischaemic cardiomyopathy
     Dosage: 80 MG, QD
     Route: 048
     Dates: start: 20211201
  5. TELMISARTAN [Concomitant]
     Active Substance: TELMISARTAN
     Indication: Ischaemic cardiomyopathy
     Dosage: 40 MG, QD
     Route: 048
     Dates: start: 201910

REACTIONS (2)
  - Rash pruritic [Recovered/Resolved]
  - Rash papular [Recovered/Resolved]

NARRATIVE: CASE EVENT DATE: 20220122
